FAERS Safety Report 10082418 (Version 3)
Quarter: 2014Q3

REPORT INFORMATION
  Report Type: Spontaneous
  Country: US (occurrence: None)
  Receive Date: 20140410
  Receipt Date: 20140829
  Transmission Date: 20150326
  Serious: Yes (Other)
  Sender: FDA-Public Use
  Company Number: ADR-2009-7828

PATIENT
  Sex: Female

DRUGS (8)
  1. GABLOFEN [Suspect]
     Active Substance: BACLOFEN
     Indication: MUSCLE SPASTICITY
  2. LIORESAL [Suspect]
     Active Substance: BACLOFEN
     Indication: MUSCLE SPASTICITY
  3. MIRALAX [Suspect]
     Active Substance: POLYETHYLENE GLYCOL 3350
  4. TOPAMAX [Suspect]
     Active Substance: TOPIRAMATE
  5. UNSPECIFIED MIGRAINE MED [Suspect]
     Active Substance: UNSPECIFIED INGREDIENT
  6. BOTOX [Suspect]
     Active Substance: ONABOTULINUMTOXINA
  7. MORPHINE [Suspect]
     Active Substance: MORPHINE
  8. ANTIDEPRESSANT [Suspect]
     Active Substance: UNSPECIFIED INGREDIENT

REACTIONS (8)
  - Overdose [None]
  - Muscle spasms [None]
  - Ill-defined disorder [None]
  - Headache [None]
  - Hypertonia [None]
  - Migraine [None]
  - Device alarm issue [None]
  - Loss of consciousness [None]
